FAERS Safety Report 8878915 (Version 2)
Quarter: 2012Q4

REPORT INFORMATION
  Report Type: 
  Country: US (occurrence: US)
  Receive Date: 20121026
  Receipt Date: 20121119
  Transmission Date: 20130627
  Serious: No
  Sender: FDA-Public Use
  Company Number: US-PFIZER INC-2012268085

PATIENT
  Age: 57 Year
  Sex: Female
  Weight: 63.95 kg

DRUGS (9)
  1. LYRICA [Suspect]
     Indication: PAIN IN EXTREMITY
     Dosage: 75 mg, 2x/day
     Route: 048
     Dates: start: 2011, end: 201208
  2. BYSTOLIC [Concomitant]
     Indication: BLOOD PRESSURE HIGH
     Dosage: 20 mg, 1x/day
  3. AMLODIPINE [Concomitant]
     Indication: BLOOD PRESSURE HIGH
     Dosage: 5 mg, 1x/day
  4. ALPRAZOLAM [Concomitant]
     Dosage: 0.5 mg, 3x/day
  5. FLEXERIL [Concomitant]
     Dosage: 10 mg, 1x/day
  6. DICYCLOMINE [Concomitant]
     Indication: DIVERTICULITIS
     Dosage: 10 mg, 3x/day
  7. REGLAN [Concomitant]
     Indication: DIFFICULT DIGESTION
     Dosage: 10 mg, 2x/day
  8. OMEGA-3 FATTY ACID [Concomitant]
     Dosage: 1000 mg, UNK
  9. PRILOSEC [Concomitant]
     Dosage: 20 mg, 1x/day

REACTIONS (4)
  - Headache [Not Recovered/Not Resolved]
  - Hypoaesthesia [Not Recovered/Not Resolved]
  - Neuralgia [Not Recovered/Not Resolved]
  - Pain in extremity [Not Recovered/Not Resolved]
